FAERS Safety Report 14254294 (Version 3)
Quarter: 2018Q3

REPORT INFORMATION
  Report Type: Spontaneous
  Country: CA (occurrence: CA)
  Receive Date: 20171206
  Receipt Date: 20180711
  Transmission Date: 20181010
  Serious: Yes (Hospitalization, Other)
  Sender: FDA-Public Use
  Company Number: CA-AMGEN-CANSP2017179669

PATIENT
  Age: 65 Year
  Sex: Female

DRUGS (16)
  1. COD LIVER OIL [Concomitant]
     Active Substance: COD LIVER OIL
     Indication: PRODUCT USED FOR UNKNOWN INDICATION
     Dosage: UNK
     Route: 065
  2. RITUXIMAB. [Suspect]
     Active Substance: RITUXIMAB
     Dosage: 645 MG, Q4WK
     Route: 042
  3. VINCRISTINE [Suspect]
     Active Substance: VINCRISTINE
     Indication: PRODUCT USED FOR UNKNOWN INDICATION
     Dosage: 2 MG, Q3WK
     Route: 042
  4. PROCYTOX [Suspect]
     Active Substance: CYCLOPHOSPHAMIDE
     Indication: PRODUCT USED FOR UNKNOWN INDICATION
     Dosage: 750 MG/M2, Q3WK
     Route: 042
  5. DYCLONINE HYDROCHLORIDE [Concomitant]
     Active Substance: DYCLONINE HYDROCHLORIDE
     Indication: PRODUCT USED FOR UNKNOWN INDICATION
     Dosage: UNK
     Route: 065
  6. ERGOCALCIFEROL. [Concomitant]
     Active Substance: ERGOCALCIFEROL
     Indication: PRODUCT USED FOR UNKNOWN INDICATION
     Dosage: UNK
     Route: 065
  7. PROCHLORPERAZINE. [Concomitant]
     Active Substance: PROCHLORPERAZINE
     Indication: PRODUCT USED FOR UNKNOWN INDICATION
     Dosage: UNK
     Route: 065
  8. RITUXIMAB. [Suspect]
     Active Substance: RITUXIMAB
     Indication: PRODUCT USED FOR UNKNOWN INDICATION
     Dosage: 840 MG, Q3WK
     Route: 042
  9. RITUXIMAB. [Suspect]
     Active Substance: RITUXIMAB
     Dosage: 375 MG/M2, Q3WK
     Route: 042
  10. DIPHENHYDRAMINE. [Concomitant]
     Active Substance: DIPHENHYDRAMINE
     Indication: PRODUCT USED FOR UNKNOWN INDICATION
     Dosage: UNK
     Route: 065
  11. DOXORUBICIN [Suspect]
     Active Substance: DOXORUBICIN
     Indication: PRODUCT USED FOR UNKNOWN INDICATION
     Dosage: 50 MG/M2, Q3WK
     Route: 042
  12. NEULASTA [Suspect]
     Active Substance: PEGFILGRASTIM
     Indication: PRODUCT USED FOR UNKNOWN INDICATION
     Dosage: UNK UNK, CYCLICAL
     Route: 058
  13. FLUDARABINE [Suspect]
     Active Substance: FLUDARABINE PHOSPHATE
     Indication: PRODUCT USED FOR UNKNOWN INDICATION
     Dosage: UNK UNK, CYCLICAL
     Route: 065
  14. PREDNISONE. [Suspect]
     Active Substance: PREDNISONE
     Indication: PRODUCT USED FOR UNKNOWN INDICATION
     Dosage: 100 MG, Q3WK
     Route: 048
  15. FILGRASTIM [Suspect]
     Active Substance: FILGRASTIM
     Indication: PRODUCT USED FOR UNKNOWN INDICATION
     Dosage: UNK UNK, CYCLICAL
     Route: 042
  16. RITUXIMAB. [Suspect]
     Active Substance: RITUXIMAB
     Dosage: 630 MG, Q3WK
     Route: 042

REACTIONS (15)
  - Blood magnesium decreased [Unknown]
  - Febrile neutropenia [Unknown]
  - Productive cough [Unknown]
  - Disease progression [Unknown]
  - Weight decreased [Unknown]
  - White blood cell count decreased [Unknown]
  - Hypotension [Unknown]
  - Arthralgia [Unknown]
  - Clostridium difficile infection [Unknown]
  - Muscle twitching [Unknown]
  - Lymphadenitis [Unknown]
  - Platelet count decreased [Unknown]
  - Infection [Unknown]
  - Heart rate abnormal [Unknown]
  - Thrombosis [Unknown]
